FAERS Safety Report 16990156 (Version 1)
Quarter: 2019Q4

REPORT INFORMATION
  Report Type: Spontaneous
  Country: US (occurrence: US)
  Receive Date: 20191101
  Receipt Date: 20191101
  Transmission Date: 20200122
  Serious: Yes (Hospitalization)
  Sender: FDA-Public Use
  Company Number: None

PATIENT
  Age: 48 Year
  Sex: Male
  Weight: 53 kg

DRUGS (1)
  1. ERTAPENEM. [Suspect]
     Active Substance: ERTAPENEM SODIUM
     Indication: CHOLECYSTOSTOMY
     Dates: start: 20191021, end: 20191030

REACTIONS (2)
  - Pemphigus [None]
  - Skin exfoliation [None]

NARRATIVE: CASE EVENT DATE: 20191030
